FAERS Safety Report 12540143 (Version 3)
Quarter: 2018Q1

REPORT INFORMATION
  Report Type: Spontaneous
  Country: US (occurrence: US)
  Receive Date: 20160708
  Receipt Date: 20180117
  Transmission Date: 20180508
  Serious: Yes (Hospitalization)
  Sender: FDA-Public Use
  Company Number: US-PFIZER INC-2016324770

PATIENT
  Age: 59 Year
  Sex: Male
  Weight: 67 kg

DRUGS (5)
  1. RAPAMUNE [Suspect]
     Active Substance: SIROLIMUS
     Indication: GRAFT VERSUS HOST DISEASE IN LIVER
     Dosage: 2 ML, UNK
     Route: 048
     Dates: start: 201601
  2. RAPAMUNE [Suspect]
     Active Substance: SIROLIMUS
     Indication: NON-HODGKIN^S LYMPHOMA
     Dosage: 1.5 ML, UNK
     Route: 048
  3. RAPAMUNE [Suspect]
     Active Substance: SIROLIMUS
     Indication: FOLLICLE CENTRE LYMPHOMA, FOLLICULAR GRADE I, II, III
  4. RAPAMUNE [Suspect]
     Active Substance: SIROLIMUS
     Indication: COMPLICATIONS OF BONE MARROW TRANSPLANT
  5. RAPAMUNE [Suspect]
     Active Substance: SIROLIMUS
     Indication: LYMPHOMA
     Dosage: 1 MG, UNK
     Route: 048

REACTIONS (4)
  - Viral infection [Recovered/Resolved]
  - Haematochezia [Recovered/Resolved]
  - Abdominal infection [Recovering/Resolving]
  - Product use in unapproved indication [Not Recovered/Not Resolved]

NARRATIVE: CASE EVENT DATE: 201601
